FAERS Safety Report 8958859 (Version 1)
Quarter: 2012Q4

REPORT INFORMATION
  Report Type: 
  Country: BR (occurrence: BR)
  Receive Date: 20121212
  Receipt Date: 20121212
  Transmission Date: 20130627
  Serious: Yes (Other)
  Sender: FDA-Public Use
  Company Number: BR-ELI_LILLY_AND_COMPANY-BR201211009398

PATIENT
  Age: 52 Year
  Sex: Female
  Weight: 58 kg

DRUGS (3)
  1. CYMBALTA [Suspect]
     Indication: NERVOUS SYSTEM DISORDER
     Dosage: 30 mg, qd
     Route: 048
     Dates: start: 20121121, end: 20121123
  2. GABAPENTINA [Concomitant]
     Dosage: 300 mg, bid
     Route: 065
  3. INTERFERON BETA-1A [Concomitant]
     Dosage: 44 ug, 3/W
     Route: 065

REACTIONS (10)
  - VIIth nerve paralysis [Recovered/Resolved]
  - Tinnitus [Not Recovered/Not Resolved]
  - Retching [Recovered/Resolved]
  - Discomfort [Recovered/Resolved]
  - Nausea [Not Recovered/Not Resolved]
  - Constipation [Recovered/Resolved]
  - Dizziness [Recovered/Resolved]
  - Dry mouth [Not Recovered/Not Resolved]
  - Malaise [Recovered/Resolved]
  - Off label use [Recovered/Resolved]
